FAERS Safety Report 6018314-0 (Version None)
Quarter: 2008Q4

REPORT INFORMATION
  Report Type: 
  Country: None (occurrence: None)
  Receive Date: 20081223
  Receipt Date: 20081212
  Transmission Date: 20090506
  Serious: Yes (Hospitalization, Disabling)
  Sender: FDA-Public Use
  Company Number: US-SANOFI-SYNTHELABO-A03200803262

PATIENT
  Sex: Female

DRUGS (4)
  1. AMBIEN CR [Suspect]
     Indication: DRUG USE FOR UNKNOWN INDICATION
     Dosage: HAD ONLY TAKEN TABLETS 4 TIMES BEFORE THE ACCIDENT
     Route: 048
     Dates: start: 20070413
  2. ROBAXIN [Concomitant]
     Indication: DRUG USE FOR UNKNOWN INDICATION
     Dosage: UNK
     Route: 065
  3. LEXAPRO [Concomitant]
     Indication: DRUG USE FOR UNKNOWN INDICATION
     Dosage: UNK
     Route: 065
  4. TYLENOL (CAPLET) [Concomitant]
     Indication: DRUG USE FOR UNKNOWN INDICATION
     Route: 065

REACTIONS (11)
  - ALTERED STATE OF CONSCIOUSNESS [None]
  - BACK PAIN [None]
  - DYSPNOEA [None]
  - FALL [None]
  - LUNG INJURY [None]
  - NEURALGIA [None]
  - NEUROGENIC BLADDER [None]
  - PARAPLEGIA [None]
  - SOMNAMBULISM [None]
  - SPINAL FRACTURE [None]
  - URINARY RETENTION [None]
